FAERS Safety Report 20368510 (Version 1)
Quarter: 2022Q1

REPORT INFORMATION
  Report Type: Spontaneous
  Country: US (occurrence: US)
  Receive Date: 20220124
  Receipt Date: 20220124
  Transmission Date: 20220423
  Serious: Yes (Other)
  Sender: FDA-Public Use
  Company Number: US-SA-SAC20220120000754

PATIENT
  Age: 64 Year
  Sex: Female

DRUGS (2)
  1. ZANTAC [Suspect]
     Active Substance: RANITIDINE HYDROCHLORIDE
     Indication: Dyspepsia
     Dosage: UNK, QD
     Dates: start: 199601, end: 201301
  2. ZANTAC [Suspect]
     Active Substance: RANITIDINE HYDROCHLORIDE
     Indication: Gastrooesophageal reflux disease

REACTIONS (5)
  - Bladder cancer stage III [Recovering/Resolving]
  - Colorectal cancer stage IV [Recovering/Resolving]
  - Gastrointestinal carcinoma [Recovering/Resolving]
  - Pancreatic carcinoma stage IV [Recovering/Resolving]
  - Gastric cancer stage III [Recovering/Resolving]

NARRATIVE: CASE EVENT DATE: 20191201
